FAERS Safety Report 7295190-X (Version None)
Quarter: 2011Q1

REPORT INFORMATION
  Report Type: 
  Country: None (occurrence: None)
  Receive Date: 20110216
  Receipt Date: 20101122
  Transmission Date: 20110831
  Serious: No
  Sender: FDA-Public Use
  Company Number: A0894521A

PATIENT
  Sex: Female

DRUGS (2)
  1. NO CONCURRENT MEDICATION [Concomitant]
  2. VOTRIENT [Suspect]
     Indication: CARCINOID SYNDROME
     Dosage: 800MG PER DAY
     Route: 048
     Dates: start: 20100726

REACTIONS (1)
  - ADVERSE DRUG REACTION [None]
